FAERS Safety Report 9705465 (Version 1)
Quarter: 2013Q4

REPORT INFORMATION
  Report Type: Spontaneous
  Country: FR (occurrence: FR)
  Receive Date: 20131122
  Receipt Date: 20131122
  Transmission Date: 20140711
  Serious: Yes (Life-Threatening)
  Sender: FDA-Public Use
  Company Number: FR-B.I. PHARMACEUTICALS,INC./RIDGEFIELD-2013-FF-02726FF

PATIENT
  Age: 88 Year
  Sex: Female

DRUGS (10)
  1. PRADAXA [Suspect]
     Indication: ATRIAL FIBRILLATION
     Route: 048
     Dates: start: 20130301, end: 20130927
  2. CLAVULANIC ACID [Concomitant]
     Indication: INFECTION
     Route: 048
     Dates: start: 20130925, end: 20131002
  3. FUROSEMIDE [Concomitant]
     Indication: HYPERTENSION
     Route: 048
     Dates: start: 20130214
  4. GLICLAZIDE [Concomitant]
     Indication: DIABETES MELLITUS
     Route: 048
     Dates: start: 20130304
  5. NOVORAPID [Concomitant]
     Indication: DIABETES MELLITUS
     Route: 058
     Dates: start: 20130218
  6. ATROVENT [Concomitant]
     Indication: BRONCHITIS
     Route: 045
     Dates: start: 20130925, end: 20131009
  7. TRANSIPEG [Concomitant]
     Indication: CONSTIPATION
     Route: 048
     Dates: start: 20130502
  8. TEMERIT [Concomitant]
     Indication: HYPERTENSION
     Route: 048
  9. TRIATEC [Concomitant]
     Indication: HYPERTENSION
     Route: 048
     Dates: start: 20130327
  10. BRICANYL [Concomitant]
     Indication: BRONCHITIS
     Route: 045
     Dates: start: 20130925, end: 20131009

REACTIONS (2)
  - Gastrointestinal haemorrhage [Recovered/Resolved]
  - Anaemia [Not Recovered/Not Resolved]
